FAERS Safety Report 10785281 (Version 1)
Quarter: 2015Q1

REPORT INFORMATION
  Report Type: Spontaneous
  Country: KR (occurrence: None)
  Receive Date: 20150209
  Receipt Date: 20150209
  Transmission Date: 20150721
  Serious: Yes (Death, Hospitalization)
  Sender: FDA-Public Use
  Company Number: NSR_01826_2015

PATIENT
  Age: 84 Year
  Sex: Male

DRUGS (3)
  1. ALLOPURINOL. [Suspect]
     Active Substance: ALLOPURINOL
     Indication: NEPHROPATHY
  2. METHYLPREDNISOLONE. [Concomitant]
     Active Substance: METHYLPREDNISOLONE
  3. TORASEMIDE (TORASEMIDE) [Suspect]
     Active Substance: TORSEMIDE
     Indication: NEPHROPATHY

REACTIONS (8)
  - Hepatic cyst [None]
  - Sinus tachycardia [None]
  - Drug reaction with eosinophilia and systemic symptoms [None]
  - Chest pain [None]
  - Blood pressure systolic increased [None]
  - Cardiac disorder [None]
  - Troponin I increased [None]
  - Cardiac arrest [None]
